FAERS Safety Report 10204937 (Version 1)
Quarter: 2014Q2

REPORT INFORMATION
  Report Type: Spontaneous
  Country: FR (occurrence: FR)
  Receive Date: 20140529
  Receipt Date: 20140529
  Transmission Date: 20141212
  Serious: Yes (Other)
  Sender: FDA-Public Use
  Company Number: CHPA2014FR007033

PATIENT
  Age: 82 Year
  Sex: Female

DRUGS (3)
  1. FERROUS SULFATE [Suspect]
     Indication: MINERAL SUPPLEMENTATION
     Dosage: 80 MG, QD
  2. ESOMEPRAZOLE [Concomitant]
  3. CLONAZEPAM [Concomitant]

REACTIONS (1)
  - Mouth ulceration [Recovered/Resolved]
